FAERS Safety Report 9185191 (Version 1)
Quarter: 2012Q4

REPORT INFORMATION
  Report Type: 
  Country: FR (occurrence: FR)
  Receive Date: 20121101
  Receipt Date: 20121101
  Transmission Date: 20130627
  Serious: Yes (Other)
  Sender: FDA-Public Use
  Company Number: FR-ROCHE-1151155

PATIENT
  Sex: Male

DRUGS (1)
  1. ZELBORAF [Suspect]
     Indication: METASTATIC MALIGNANT MELANOMA
     Route: 048

REACTIONS (4)
  - Cystic lymphangioma [Recovered/Resolved]
  - Arthralgia [Recovered/Resolved]
  - Xerophthalmia [Not Recovered/Not Resolved]
  - Dry mouth [Not Recovered/Not Resolved]
